FAERS Safety Report 5577096-7 (Version None)
Quarter: 2007Q4

REPORT INFORMATION
  Report Type: 
  Country: None (occurrence: None)
  Receive Date: 20071228
  Receipt Date: 20071220
  Transmission Date: 20080405
  Serious: Yes (Hospitalization, Other)
  Sender: FDA-Public Use
  Company Number: JP-PFIZER INC-2007093804

PATIENT
  Age: 76 Year
  Sex: Female

DRUGS (3)
  1. MEDROL [Suspect]
     Route: 048
     Dates: start: 20071017, end: 20070101
  2. SOLU-MEDROL [Concomitant]
     Dosage: FREQ:PULSE THERAPY
     Route: 042
     Dates: start: 20070501, end: 20071012
  3. PREDONINE [Concomitant]
     Route: 048
     Dates: start: 20071013, end: 20071016

REACTIONS (2)
  - CEREBRAL INFARCTION [None]
  - GASTROINTESTINAL HAEMORRHAGE [None]
